FAERS Safety Report 10256180 (Version 1)
Quarter: 2014Q2

REPORT INFORMATION
  Report Type: Spontaneous
  Country: US (occurrence: US)
  Receive Date: 20140624
  Receipt Date: 20140624
  Transmission Date: 20141212
  Serious: Yes (Other)
  Sender: FDA-Public Use
  Company Number: US-PFIZER INC-2014171124

PATIENT
  Sex: Female

DRUGS (2)
  1. CELEBREX [Suspect]
     Indication: OSTEOARTHRITIS
     Dosage: 200 MG, 2X/DAY
     Route: 048
  2. PREDNISOLONE [Suspect]
     Dosage: UNK
     Dates: start: 1993

REACTIONS (7)
  - Fall [Unknown]
  - Intervertebral disc protrusion [Unknown]
  - Rotator cuff syndrome [Unknown]
  - Lower limb fracture [Unknown]
  - Arthritis [Unknown]
  - Arthralgia [Unknown]
  - Pain [Unknown]
